FAERS Safety Report 20673853 (Version 4)
Quarter: 2022Q3

REPORT INFORMATION
  Report Type: Report from Study
  Country: US (occurrence: US)
  Receive Date: 20220405
  Receipt Date: 20220827
  Transmission Date: 20221027
  Serious: No
  Sender: FDA-Public Use
  Company Number: US-NOVARTISTESTPH-NVSC2022US075997

PATIENT
  Sex: Female

DRUGS (1)
  1. ENTRESTO [Suspect]
     Active Substance: SACUBITRIL\VALSARTAN
     Indication: Product used for unknown indication
     Dosage: UNK (APPROX 2 YEARS AGO)
     Route: 065

REACTIONS (3)
  - Adverse drug reaction [Unknown]
  - Blood potassium increased [Unknown]
  - Wrong technique in product usage process [Unknown]
